FAERS Safety Report 8817355 (Version 1)
Quarter: 2012Q4

REPORT INFORMATION
  Report Type: 
  Country: US (occurrence: US)
  Receive Date: 20121004
  Receipt Date: 20121004
  Transmission Date: 20130627
  Serious: Yes (Other)
  Sender: FDA-Public Use
  Company Number: US-CELGENEUS-163-20785-12100077

PATIENT
  Sex: Female

DRUGS (1)
  1. THALOMID [Suspect]
     Indication: ORAL APHTHAE
     Dosage: 50 Milligram
     Route: 048
     Dates: start: 20120829

REACTIONS (1)
  - Amenorrhoea [Unknown]
